FAERS Safety Report 9294931 (Version 1)
Quarter: 2013Q2

REPORT INFORMATION
  Report Type: Spontaneous
  Country: US (occurrence: None)
  Receive Date: 20130516
  Receipt Date: 20130516
  Transmission Date: 20140414
  Serious: Yes (Hospitalization)
  Sender: FDA-Public Use
  Company Number: None

PATIENT
  Age: 63 Year
  Sex: Female
  Weight: 105.69 kg

DRUGS (1)
  1. SMZ/TMP DS [Suspect]
     Indication: BURSA INJURY
     Dosage: 2 TABLETS
     Route: 048

REACTIONS (5)
  - Back pain [None]
  - Chills [None]
  - Headache [None]
  - Rash [None]
  - Local swelling [None]
